FAERS Safety Report 25299072 (Version 2)
Quarter: 2025Q2

REPORT INFORMATION
  Report Type: Spontaneous
  Country: US (occurrence: US)
  Receive Date: 20250512
  Receipt Date: 20250522
  Transmission Date: 20250716
  Serious: No
  Sender: ABBVIE
  Company Number: US-ABBVIE-6273229

PATIENT
  Age: 54 Year
  Sex: Female

DRUGS (1)
  1. ELAHERE [Suspect]
     Active Substance: MIRVETUXIMAB SORAVTANSINE-GYNX
     Indication: Ovarian cancer
     Dosage: DOSAGE: 5 MG/ML STRENGTH: 5 MG/ML INJECTION
     Route: 042
     Dates: end: 20250516

REACTIONS (5)
  - Muscle tightness [Recovered/Resolved]
  - Unevaluable event [Recovered/Resolved]
  - Dyskinesia [Unknown]
  - Unevaluable event [Recovered/Resolved]
  - Muscle tightness [Recovered/Resolved]

NARRATIVE: CASE EVENT DATE: 20250405
